FAERS Safety Report 8571677-4 (Version None)
Quarter: 2012Q3

REPORT INFORMATION
  Report Type: 
  Country: None (occurrence: None)
  Receive Date: 20120806
  Receipt Date: 20120724
  Transmission Date: 20120928
  Serious: Yes (Hospitalization)
  Sender: FDA-Public Use
  Company Number: US-JNJFOC-20120712698

PATIENT
  Sex: Female
  Weight: 58.97 kg

DRUGS (11)
  1. DURAGESIC-100 [Suspect]
     Route: 062
  2. DAPSONE [Concomitant]
     Indication: MULTIPLE ALLERGIES
     Route: 048
     Dates: start: 19970101
  3. NORVASC [Concomitant]
     Indication: CARDIAC DISORDER
     Route: 048
  4. POTASSIUM [Concomitant]
     Route: 048
  5. DURAGESIC-100 [Suspect]
     Route: 062
  6. PROTONIX [Concomitant]
     Indication: MUSCLE SPASMS
     Route: 048
  7. DURAGESIC-100 [Suspect]
     Indication: PROCEDURAL PAIN
     Route: 062
  8. LASIX [Concomitant]
     Indication: HYPERTENSION
     Route: 048
  9. ATIVAN [Concomitant]
     Indication: ANXIETY
     Route: 048
  10. FIORINAL [Concomitant]
     Indication: HEADACHE
     Route: 048
  11. DURAGESIC-100 [Suspect]
     Route: 062

REACTIONS (9)
  - IMMUNE SYSTEM DISORDER [None]
  - CORONARY ARTERY DISEASE [None]
  - FIBROMYALGIA [None]
  - INTERVERTEBRAL DISC DEGENERATION [None]
  - CHRONIC OBSTRUCTIVE PULMONARY DISEASE [None]
  - BREAKTHROUGH PAIN [None]
  - EMPHYSEMA [None]
  - PROCEDURAL PAIN [None]
  - WRONG TECHNIQUE IN DRUG USAGE PROCESS [None]
